FAERS Safety Report 7402630-1 (Version None)
Quarter: 2011Q1

REPORT INFORMATION
  Report Type: 
  Country: None (occurrence: None)
  Receive Date: 20110331
  Receipt Date: 20110322
  Transmission Date: 20110831
  Serious: Yes (Disabling)
  Sender: FDA-Public Use
  Company Number: GER/UKI/11/0017599

PATIENT
  Age: 76 Year
  Sex: Female

DRUGS (9)
  1. ATORVASTATIN (ATORVASTATIN) [Concomitant]
  2. BISACODYL (BISACODYL) [Concomitant]
  3. NITRAZEPAM [Concomitant]
  4. ALENDRONIC ACID (ALENDRONIC ACID) [Suspect]
     Indication: OSTEOPOROSIS
     Dosage: 70 MG, 1 IN 1 WK, ORAL
     Route: 048
     Dates: start: 20100301
  5. ASPIRIN [Concomitant]
  6. CO-CODAMOL (PANADEINE CO) [Concomitant]
  7. SENNA (SENNA ALEXANDRINA) [Concomitant]
  8. OMEPRAZOLE [Concomitant]
  9. ADCAL D3 (LEKOVIT CA) [Concomitant]

REACTIONS (6)
  - DRUG ADMINISTRATION ERROR [None]
  - GAIT DISTURBANCE [None]
  - DYSSTASIA [None]
  - OEDEMA PERIPHERAL [None]
  - MEDICATION ERROR [None]
  - ERYTHEMA [None]
